FAERS Safety Report 17434441 (Version 1)
Quarter: 2020Q1

REPORT INFORMATION
  Report Type: Spontaneous
  Country: US (occurrence: US)
  Receive Date: 20200204
  Receipt Date: 20200204
  Transmission Date: 20200409
  Serious: No
  Sender: FDA-Public Use
  Company Number: None

PATIENT
  Sex: Female

DRUGS (1)
  1. SUTENT [Suspect]
     Active Substance: SUNITINIB MALATE
     Indication: MALIGNANT CONNECTIVE TISSUE NEOPLASM
     Route: 048
     Dates: start: 201704

REACTIONS (2)
  - Back pain [None]
  - Formication [None]
